FAERS Safety Report 17545048 (Version 1)
Quarter: 2020Q1

REPORT INFORMATION
  Report Type: Spontaneous
  Country: US (occurrence: US)
  Receive Date: 20200313
  Receipt Date: 20200313
  Transmission Date: 20200409
  Serious: No
  Sender: FDA-Public Use
  Company Number: None

PATIENT
  Age: 32 Year
  Sex: Female
  Weight: 58 kg

DRUGS (2)
  1. ANGIOTENSIN II ACETATE [Suspect]
     Active Substance: ANGIOTENSIN II ACETATE
     Indication: HYPOTENSION
     Dosage: ?          OTHER FREQUENCY:10-40 NG/KG/MIN;?
     Route: 041
  2. ANGIOTENSIN II ACETATE [Concomitant]
     Active Substance: ANGIOTENSIN II ACETATE
     Dates: start: 20200221, end: 20200222

REACTIONS (8)
  - Deep vein thrombosis [None]
  - Axillary vein thrombosis [None]
  - Peripheral artery thrombosis [None]
  - Subclavian vein thrombosis [None]
  - Cardiac arrest [None]
  - Gastrointestinal haemorrhage [None]
  - Endothelial dysfunction [None]
  - Hypercoagulation [None]

NARRATIVE: CASE EVENT DATE: 20200223
